FAERS Safety Report 20738070 (Version 1)
Quarter: 2022Q2

REPORT INFORMATION
  Report Type: Spontaneous
  Country: US (occurrence: US)
  Receive Date: 20220422
  Receipt Date: 20220422
  Transmission Date: 20220721
  Serious: No
  Sender: FDA-Public Use
  Company Number: US-JNJFOC-20220435444

PATIENT
  Sex: Male

DRUGS (6)
  1. ZYTIGA [Suspect]
     Active Substance: ABIRATERONE ACETATE
     Indication: Prostate cancer stage IV
     Route: 048
  2. ORGOVYX [Suspect]
     Active Substance: RELUGOLIX
     Indication: Prostate cancer stage IV
  3. NEULASTA [Suspect]
     Active Substance: PEGFILGRASTIM
     Indication: Product used for unknown indication
  4. XTANDI [Suspect]
     Active Substance: ENZALUTAMIDE
     Indication: Prostate cancer stage IV
  5. DEGARELIX [Suspect]
     Active Substance: DEGARELIX
     Indication: Prostate cancer stage IV
  6. TAXOTERE [Suspect]
     Active Substance: DOCETAXEL
     Indication: Chemotherapy

REACTIONS (3)
  - Bone pain [Unknown]
  - Back pain [Unknown]
  - Arthralgia [Unknown]
